FAERS Safety Report 8126472-7 (Version None)
Quarter: 2012Q1

REPORT INFORMATION
  Report Type: 
  Country: None (occurrence: None)
  Receive Date: 20120209
  Receipt Date: 20120202
  Transmission Date: 20120608
  Serious: Yes (Hospitalization)
  Sender: FDA-Public Use
  Company Number: JP-ASTRAZENECA-2012SE04288

PATIENT
  Sex: Female

DRUGS (1)
  1. FASLODEX [Suspect]
     Indication: BREAST CANCER RECURRENT
     Route: 030

REACTIONS (2)
  - WHITE BLOOD CELL COUNT DECREASED [None]
  - HEPATIC CIRRHOSIS [None]
